FAERS Safety Report 4966148-8 (Version None)
Quarter: 2006Q2

REPORT INFORMATION
  Report Type: 
  Country: None (occurrence: None)
  Receive Date: 20060407
  Receipt Date: 20060330
  Transmission Date: 20061013
  Serious: No
  Sender: FDA-Public Use
  Company Number: 2006UW05620

PATIENT
  Age: 42 Year
  Sex: Female
  Weight: 107 kg

DRUGS (15)
  1. SEROQUEL [Suspect]
     Indication: SCHIZOAFFECTIVE DISORDER
     Route: 048
  2. SEROQUEL [Suspect]
     Route: 048
     Dates: start: 20060101
  3. PROZAC [Concomitant]
  4. ATIVAN [Concomitant]
  5. ESCOLITH [Concomitant]
  6. RISPERDAL [Concomitant]
  7. HALDOL [Concomitant]
  8. POTASSIUM [Concomitant]
  9. LORATADINE [Concomitant]
  10. SINGULAIR [Concomitant]
  11. LIPITOR [Concomitant]
  12. NAPROXEN [Concomitant]
  13. ADVAIR DISKUS 100/50 [Concomitant]
  14. ALBUTEROL [Concomitant]
  15. LEVOXYL [Concomitant]

REACTIONS (5)
  - ALANINE AMINOTRANSFERASE INCREASED [None]
  - BLOOD ALKALINE PHOSPHATASE INCREASED [None]
  - BLOOD AMYLASE INCREASED [None]
  - EOSINOPHILIA [None]
  - RED CELL DISTRIBUTION WIDTH INCREASED [None]
